FAERS Safety Report 22815048 (Version 3)
Quarter: 2023Q4

REPORT INFORMATION
  Report Type: Spontaneous
  Country: JP (occurrence: JP)
  Receive Date: 20230811
  Receipt Date: 20231024
  Transmission Date: 20240110
  Serious: Yes (Other)
  Sender: FDA-Public Use
  Company Number: JP-AMERICAN REGENT INC-2023001945

PATIENT
  Age: 50 Year
  Sex: Female

DRUGS (4)
  1. FERINJECT [Suspect]
     Active Substance: FERRIC CARBOXYMALTOSE
     Indication: Iron deficiency anaemia
     Dosage: 500 MILLIGRAM, DILUTED IN 100 ML OF 0.9 PERCENT SODIUM CHLORIDE (NACL)
     Dates: start: 20230728, end: 20230728
  2. FERINJECT [Suspect]
     Active Substance: FERRIC CARBOXYMALTOSE
     Dosage: 500 MILLIGRAM, DILUTED IN 100 ML OF 0.9 PERCENT SODIUM CHLORIDE (NACL)
     Dates: start: 20230729, end: 20230729
  3. FERINJECT [Suspect]
     Active Substance: FERRIC CARBOXYMALTOSE
     Dosage: 500 MILLIGRAM, DILUTED IN 100 ML OF 0.9 PERCENT SODIUM CHLORIDE (NACL)
     Dates: start: 20230730, end: 20230730
  4. ETHINYL ESTRADIOL\NORGESTREL [Concomitant]
     Active Substance: ETHINYL ESTRADIOL\NORGESTREL
     Indication: Intermenstrual bleeding
     Dosage: UNK, PRESCRIBED FOR 7 DAYS
     Route: 065
     Dates: start: 20230728

REACTIONS (3)
  - Haemoglobin decreased [Recovering/Resolving]
  - Pyrexia [Recovered/Resolved]
  - Inappropriate schedule of product administration [Unknown]

NARRATIVE: CASE EVENT DATE: 20230729
